FAERS Safety Report 23363314 (Version 1)
Quarter: 2024Q1

REPORT INFORMATION
  Report Type: Spontaneous
  Country: FR (occurrence: FR)
  Receive Date: 20240103
  Receipt Date: 20240103
  Transmission Date: 20240410
  Serious: Yes (Hospitalization)
  Sender: FDA-Public Use
  Company Number: None

PATIENT
  Age: 32 Year
  Sex: Male
  Weight: 82 kg

DRUGS (4)
  1. ETOPOSIDE [Suspect]
     Active Substance: ETOPOSIDE
     Indication: Anaplastic large cell lymphoma T- and null-cell types
     Dosage: 100 MILLIGRAM/SQ. METER, Q3W, D1, D2, D3 EVERY 3 WEEKS
     Route: 042
     Dates: start: 20230919, end: 20231108
  2. CARBOPLATIN [Suspect]
     Active Substance: CARBOPLATIN
     Indication: Anaplastic large cell lymphoma T- and null-cell types
     Dosage: 940 MILLIGRAM, Q3W, 10 MG/ML
     Route: 042
     Dates: start: 20230920, end: 20231107
  3. IFOSFAMIDE [Suspect]
     Active Substance: IFOSFAMIDE
     Indication: Anaplastic large cell lymphoma T- and null-cell types
     Dosage: 5000 MILLIGRAM/SQ. METER, Q3W
     Route: 042
     Dates: start: 20230920, end: 20231107
  4. ADCETRIS [Suspect]
     Active Substance: BRENTUXIMAB VEDOTIN
     Indication: Anaplastic large cell lymphoma T- and null-cell types
     Dosage: 1.8 MILLIGRAM/KILOGRAM, Q3W
     Route: 042
     Dates: start: 20230919, end: 20231106

REACTIONS (6)
  - Cholestasis [Recovering/Resolving]
  - Febrile bone marrow aplasia [Recovered/Resolved]
  - Jaundice [Recovering/Resolving]
  - Hepatic cytolysis [Recovering/Resolving]
  - Drug-induced liver injury [Recovering/Resolving]
  - Blood bilirubin increased [Recovering/Resolving]

NARRATIVE: CASE EVENT DATE: 20231115
